FAERS Safety Report 6093785-2 (Version None)
Quarter: 2009Q1

REPORT INFORMATION
  Report Type: 
  Country: None (occurrence: None)
  Receive Date: 20090223
  Receipt Date: 20090223
  Transmission Date: 20090719
  Serious: Yes (Other)
  Sender: FDA-Public Use
  Company Number: None

PATIENT
  Age: 55 Year
  Sex: Female
  Weight: 68.0396 kg

DRUGS (2)
  1. FOSAMAX [Suspect]
     Indication: OSTEOPENIA
     Dosage: 1 PILL ONE PER DAY PO
     Route: 048
     Dates: start: 20060101, end: 20090212
  2. FOSAMAX [Suspect]
     Indication: OSTEOPOROSIS
     Dosage: 1 PILL ONE PER DAY PO
     Route: 048
     Dates: start: 20060101, end: 20090212

REACTIONS (10)
  - ARTHRALGIA [None]
  - BACK PAIN [None]
  - FATIGUE [None]
  - GASTROINTESTINAL DISORDER [None]
  - IRRITABLE BOWEL SYNDROME [None]
  - JOINT SWELLING [None]
  - MUSCULOSKELETAL CHEST PAIN [None]
  - MYALGIA [None]
  - TRICHORRHEXIS [None]
  - URTICARIA [None]
